FAERS Safety Report 12194870 (Version 1)
Quarter: 2016Q1

REPORT INFORMATION
  Report Type: Spontaneous
  Country: US (occurrence: None)
  Receive Date: 20160318
  Receipt Date: 20160318
  Transmission Date: 20160526
  Serious: No
  Sender: FDA-Public Use
  Company Number: None

PATIENT
  Sex: Female

DRUGS (2)
  1. EXEMESTANE 25MG ROXANNE [Suspect]
     Active Substance: EXEMESTANE
     Indication: BONE CANCER
     Route: 048
     Dates: start: 20160121
  2. AFINITOR [Suspect]
     Active Substance: EVEROLIMUS
     Indication: BREAST CANCER
     Route: 048
     Dates: start: 20160121

REACTIONS (2)
  - Mass [None]
  - Pruritus [None]
